FAERS Safety Report 15994954 (Version 1)
Quarter: 2019Q1

REPORT INFORMATION
  Report Type: Spontaneous
  Country: US (occurrence: US)
  Receive Date: 20190222
  Receipt Date: 20190222
  Transmission Date: 20190418
  Serious: No
  Sender: FDA-Public Use
  Company Number: US-TEVA-2019-US-1006016

PATIENT
  Sex: Female

DRUGS (1)
  1. BUPRENORPHINE. [Suspect]
     Active Substance: BUPRENORPHINE
     Route: 062

REACTIONS (4)
  - Product physical issue [Unknown]
  - Withdrawal syndrome [Unknown]
  - Product adhesion issue [Unknown]
  - Application site pruritus [Unknown]
